FAERS Safety Report 5177385-4 (Version None)
Quarter: 2006Q4

REPORT INFORMATION
  Report Type: 
  Country: None (occurrence: None)
  Receive Date: 20061218
  Receipt Date: 20061130
  Transmission Date: 20070319
  Serious: Yes (Hospitalization)
  Sender: FDA-Public Use
  Company Number: US-AMGEN-US201885

PATIENT
  Sex: Female
  Weight: 86.7 kg

DRUGS (5)
  1. NEULASTA [Suspect]
     Indication: CHEMOTHERAPY
     Route: 058
     Dates: start: 20061124
  2. CYTOXAN [Concomitant]
     Route: 065
     Dates: start: 20061122, end: 20061122
  3. VINCRISTINE [Concomitant]
     Route: 065
     Dates: start: 20061122, end: 20061122
  4. PREDNISONE TAB [Concomitant]
     Route: 065
  5. RITUXAN [Concomitant]
     Dates: start: 20061122, end: 20061122

REACTIONS (3)
  - BACK PAIN [None]
  - PAIN [None]
  - RESPIRATORY DISTRESS [None]
